FAERS Safety Report 20304132 (Version 4)
Quarter: 2022Q2

REPORT INFORMATION
  Report Type: Report from Study
  Country: MX (occurrence: MX)
  Receive Date: 20220106
  Receipt Date: 20220521
  Transmission Date: 20220721
  Serious: Yes (Death, Hospitalization, Other)
  Sender: FDA-Public Use
  Company Number: MX-NOVARTISPH-NVSC2021MX299289

PATIENT
  Age: 82 Year
  Sex: Female
  Weight: 62 kg

DRUGS (7)
  1. VILDAGLIPTIN [Suspect]
     Active Substance: VILDAGLIPTIN
     Indication: Diabetes mellitus
     Dosage: 1 DOSAGE FORM, BID
     Route: 048
     Dates: start: 2011
  2. METFORMIN HYDROCHLORIDE\VILDAGLIPTIN [Suspect]
     Active Substance: METFORMIN HYDROCHLORIDE\VILDAGLIPTIN
     Indication: Diabetes mellitus
     Dosage: 2 DOSAGE FORM, QD (STARTED 15 YEARS AGO AND STOPPED 2 YEARS AGO)
     Route: 048
  3. AFINITOR [Suspect]
     Active Substance: EVEROLIMUS
     Indication: Product used for unknown indication
     Dosage: 2.5 MG
     Route: 065
  4. CLONAZEPAM [Concomitant]
     Active Substance: CLONAZEPAM
     Indication: Depression
     Dosage: 2 DOSAGE FORM, QD, AT NIGHT, STARTED 8 YEARS AGO
     Route: 048
  5. CLONAZEPAM [Concomitant]
     Active Substance: CLONAZEPAM
     Indication: Anxiety
  6. PAROXETINE [Concomitant]
     Active Substance: PAROXETINE
     Indication: Depression
     Dosage: 1 DOSAGE FORM, QD, AT NIGHT, STARTED 8 YEARS AGO
     Route: 048
  7. PAROXETINE [Concomitant]
     Active Substance: PAROXETINE
     Indication: Anxiety

REACTIONS (2)
  - Infarction [Fatal]
  - Renal failure [Not Recovered/Not Resolved]

NARRATIVE: CASE EVENT DATE: 20191101
